FAERS Safety Report 19845660 (Version 1)
Quarter: 2021Q3

REPORT INFORMATION
  Report Type: Spontaneous
  Country: DE (occurrence: DE)
  Receive Date: 20210917
  Receipt Date: 20210917
  Transmission Date: 20211014
  Serious: Yes (Hospitalization)
  Sender: FDA-Public Use
  Company Number: DE-TEVA-2021-DE-1951952

PATIENT
  Age: 81 Year
  Sex: Male
  Weight: 87 kg

DRUGS (7)
  1. FENOFIBRAT [Concomitant]
     Active Substance: FENOFIBRATE
     Dosage: 200 MILLIGRAM DAILY;  0?0?1?0
  2. ACETYLSALICYLSAURE [Concomitant]
     Active Substance: ASPIRIN
     Dosage: 100 MILLIGRAM DAILY;  0?1?0?0
  3. TORASEMID [Concomitant]
     Active Substance: TORSEMIDE
     Dosage: 5 MILLIGRAM DAILY;   1?0?0?0
  4. HYDROCHLOROTHIAZID/RAMIPRIL [Concomitant]
     Active Substance: HYDROCHLOROTHIAZIDE\RAMIPRIL
     Dosage: 1 DOSAGE FORMS DAILY; 25|5 MG, 1?0?0?0
  5. BISOPROLOL [Suspect]
     Active Substance: BISOPROLOL
     Dosage: 2.5 MILLIGRAM DAILY;   1?0?0?0
  6. ALLOPURINOL. [Concomitant]
     Active Substance: ALLOPURINOL
     Dosage: .5 DOSAGE FORMS DAILY; 300 MG, 0.5?0?0?0
  7. PANTOPRAZOL [Concomitant]
     Active Substance: PANTOPRAZOLE SODIUM
     Dosage: 20 MILLIGRAM DAILY;   1?0?0?0

REACTIONS (10)
  - Testicular oedema [Unknown]
  - Renal impairment [Unknown]
  - Oedema peripheral [Unknown]
  - Electrocardiogram abnormal [Unknown]
  - Systemic infection [Unknown]
  - Dizziness [Unknown]
  - Testicular swelling [Unknown]
  - Dyspnoea [Unknown]
  - General physical health deterioration [Unknown]
  - Weight increased [Unknown]
